FAERS Safety Report 20684119 (Version 5)
Quarter: 2023Q2

REPORT INFORMATION
  Report Type: Report from Study
  Country: CN (occurrence: CN)
  Receive Date: 20220407
  Receipt Date: 20230607
  Transmission Date: 20230722
  Serious: Yes (Other)
  Sender: FDA-Public Use
  Company Number: CN-TAKEDA-2022TUS022529

PATIENT
  Age: 73 Year
  Sex: Female
  Weight: 64 kg

DRUGS (12)
  1. IXAZOMIB [Suspect]
     Active Substance: IXAZOMIB
     Indication: Plasma cell myeloma
     Dosage: 4 MILLIGRAM, 1/WEEK
     Route: 048
     Dates: start: 20220317
  2. LENALIDOMIDE [Suspect]
     Active Substance: LENALIDOMIDE
     Indication: Product used for unknown indication
     Dosage: UNK
     Route: 065
  3. CALCIUM CARBONATE\CHOLECALCIFEROL [Concomitant]
     Active Substance: CALCIUM CARBONATE\CHOLECALCIFEROL
     Indication: Osteoporosis
     Dosage: UNK UNK, BID
     Route: 048
  4. DEXAMETHASONE [Concomitant]
     Active Substance: DEXAMETHASONE
     Indication: Plasma cell myeloma
     Dosage: 9 MILLIGRAM
     Route: 048
  5. ILAPRAZOLE [Concomitant]
     Active Substance: ILAPRAZOLE
     Indication: Abdominal discomfort
     Dosage: 10 MILLIGRAM, QD
     Route: 048
     Dates: start: 202203, end: 20220413
  6. CEFDINIR [Concomitant]
     Active Substance: CEFDINIR
     Indication: Nasopharyngitis
     Dosage: 0.1 GRAM, TID
     Route: 048
     Dates: start: 202203, end: 202204
  7. AMBROXOL HYDROCHLORIDE [Concomitant]
     Active Substance: AMBROXOL HYDROCHLORIDE
     Indication: Cough
     Dosage: 30 MILLIGRAM, BID
     Route: 048
     Dates: start: 202203, end: 202204
  8. AMBROXOL HYDROCHLORIDE [Concomitant]
     Active Substance: AMBROXOL HYDROCHLORIDE
     Indication: Productive cough
  9. ACYCLOVIR [Concomitant]
     Active Substance: ACYCLOVIR
     Indication: Antiviral treatment
     Dosage: UNK UNK, BID
     Route: 048
     Dates: start: 202106
  10. ACYCLOVIR [Concomitant]
     Active Substance: ACYCLOVIR
     Indication: Herpes zoster
     Dosage: UNK
     Route: 050
     Dates: start: 202106, end: 202204
  11. LORATADINE [Concomitant]
     Active Substance: LORATADINE
     Indication: Hypersensitivity
     Dosage: 10 MILLIGRAM, QD
     Route: 048
     Dates: start: 20220413
  12. FAMOTIDINE [Concomitant]
     Active Substance: FAMOTIDINE
     Indication: Gastric disorder
     Dosage: 20 MILLIGRAM, BID
     Route: 048
     Dates: start: 20220413

REACTIONS (6)
  - Hypokalaemia [Recovering/Resolving]
  - Blood creatinine increased [Recovering/Resolving]
  - Aspartate aminotransferase increased [Recovered/Resolved]
  - Diarrhoea [Recovering/Resolving]
  - Rash [Recovering/Resolving]
  - Off label use [Unknown]

NARRATIVE: CASE EVENT DATE: 20220301
